FAERS Safety Report 10547993 (Version 3)
Quarter: 2014Q4

REPORT INFORMATION
  Report Type: Spontaneous
  Country: US (occurrence: US)
  Receive Date: 20141028
  Receipt Date: 20141212
  Transmission Date: 20150529
  Serious: No
  Sender: FDA-Public Use
  Company Number: US-PFIZER INC-2014296462

PATIENT
  Age: 69 Year
  Sex: Female

DRUGS (1)
  1. LEVOTHYROXINE SODIUM. [Suspect]
     Active Substance: LEVOTHYROXINE SODIUM
     Dosage: 25 UNK
     Route: 048

REACTIONS (9)
  - Insomnia [Unknown]
  - Night sweats [Unknown]
  - Extrasystoles [Unknown]
  - Migraine [Unknown]
  - Heart rate increased [Unknown]
  - Temperature intolerance [Unknown]
  - Cardiac disorder [Unknown]
  - Drug effect incomplete [Unknown]
  - Palpitations [Unknown]
